FAERS Safety Report 7078408-8 (Version None)
Quarter: 2010Q4

REPORT INFORMATION
  Report Type: 
  Country: None (occurrence: None)
  Receive Date: 20101101
  Receipt Date: 20101101
  Transmission Date: 20110411
  Serious: Yes (Life-Threatening, Hospitalization)
  Sender: FDA-Public Use
  Company Number: None

PATIENT
  Age: 4 Month
  Sex: Female
  Weight: 6.8 kg

DRUGS (1)
  1. HYLAND'S TEETHING TABLETS UNKNOWN HYLAND [Suspect]
     Indication: TEETHING
     Dates: start: 20101001, end: 20101030

REACTIONS (6)
  - ABNORMAL SENSATION IN EYE [None]
  - DROOLING [None]
  - DYSPNOEA [None]
  - RHINORRHOEA [None]
  - SKIN DISCOLOURATION [None]
  - TREMOR [None]
